FAERS Safety Report 19716964 (Version 11)
Quarter: 2021Q4

REPORT INFORMATION
  Report Type: Report from Study
  Country: None (occurrence: UA)
  Receive Date: 20210819
  Receipt Date: 20211122
  Transmission Date: 20220303
  Serious: Yes (Death, Life-Threatening)
  Sender: FDA-Public Use
  Company Number: UA-CELLTRION, INC.-2115311

PATIENT
  Age: 23 Year
  Sex: Male

DRUGS (1)
  1. TRUXIMA [Suspect]
     Active Substance: RITUXIMAB-ABBS

REACTIONS (1)
  - Intestinal tuberculosis [None]
